FAERS Safety Report 5170321-6 (Version None)
Quarter: 2006Q4

REPORT INFORMATION
  Report Type: 
  Country: None (occurrence: None)
  Receive Date: 20061204
  Receipt Date: 20061117
  Transmission Date: 20070319
  Serious: Yes (Other)
  Sender: FDA-Public Use
  Company Number: GXKR2006DE07750

PATIENT
  Age: 66 Year
  Sex: Female

DRUGS (1)
  1. MIRTAZAPIN BETA [Suspect]
     Dosage: ORAL

REACTIONS (1)
  - HEPATIC STEATOSIS [None]
